FAERS Safety Report 5740898-8 (Version None)
Quarter: 2008Q2

REPORT INFORMATION
  Report Type: 
  Country: None (occurrence: None)
  Receive Date: 20080516
  Receipt Date: 20080422
  Transmission Date: 20081010
  Serious: No
  Sender: FDA-Public Use
  Company Number: US-BOEHRINGER INGELHEIM GMBH, GERMANY-2008-BP-04928BP

PATIENT
  Sex: Female

DRUGS (23)
  1. SPIRIVA [Suspect]
     Indication: ASTHMA
     Dates: start: 20060101
  2. ADVAIR DISKUS 100/50 [Concomitant]
     Indication: DYSPNOEA
     Route: 055
  3. QVAR 80 [Concomitant]
     Indication: DYSPNOEA
  4. COMBIVENT [Concomitant]
     Indication: DYSPNOEA
  5. METOPROLOL SUCC [Concomitant]
  6. NEXIUM [Concomitant]
  7. PROBIOTIC ADVANTAGE [Concomitant]
  8. LEVOTHYROXINE SODIUM [Concomitant]
  9. PLAQUENIL [Concomitant]
  10. SPIRONOLACTONE [Concomitant]
  11. WARFARIN SODIUM [Concomitant]
  12. LASIX [Concomitant]
  13. ASPIRIN [Concomitant]
  14. BRIMONIDE TARTRATE [Concomitant]
  15. FLUTICASONE PROPION [Concomitant]
     Route: 045
  16. SINGULAIR [Concomitant]
  17. MULTIVITAMIN/MINERAL SR. [Concomitant]
  18. CHONDROITIN SULFATE [Concomitant]
  19. NITROFURANTOIN [Concomitant]
  20. XOPENEX [Concomitant]
     Route: 055
  21. VITAMIN D [Concomitant]
  22. ASCORBIC ACID [Concomitant]
  23. CALCIUM WITH D [Concomitant]

REACTIONS (1)
  - URINARY RETENTION [None]
